FAERS Safety Report 4844473-9 (Version None)
Quarter: 2005Q4

REPORT INFORMATION
  Report Type: 
  Country: None (occurrence: None)
  Receive Date: 20051202
  Receipt Date: 20031209
  Transmission Date: 20060501
  Serious: Yes (Hospitalization, Other)
  Sender: FDA-Public Use
  Company Number: US-MERCK-0312USA00991

PATIENT
  Age: 52 Year
  Sex: Female
  Weight: 72 kg

DRUGS (29)
  1. VIOXX [Suspect]
     Indication: BACK PAIN
     Route: 048
     Dates: start: 20010107, end: 20020401
  2. VIOXX [Suspect]
     Route: 048
  3. VIOXX [Suspect]
     Indication: ARTHRITIS
     Route: 048
     Dates: start: 20010107, end: 20020401
  4. VIOXX [Suspect]
     Route: 048
  5. DETROL [Concomitant]
     Indication: URINARY INCONTINENCE
     Route: 065
     Dates: start: 19991201
  6. BENADRYL [Concomitant]
     Indication: SLEEP DISORDER
     Route: 065
     Dates: start: 19941101
  7. LORCET-HD [Concomitant]
     Indication: PAIN
     Route: 065
     Dates: start: 19930901
  8. RHINOCORT [Concomitant]
     Indication: RHINITIS ALLERGIC
     Route: 065
     Dates: start: 20010701, end: 20020701
  9. TAGAMET [Concomitant]
     Indication: ULCER
     Route: 065
     Dates: start: 19930101
  10. VALIUM [Concomitant]
     Indication: ANXIETY
     Route: 065
     Dates: start: 20020101
  11. VALIUM [Concomitant]
     Route: 065
     Dates: end: 20011201
  12. WELLBUTRIN [Concomitant]
     Indication: EX-SMOKER
     Route: 065
     Dates: start: 19940601
  13. MICARDIS [Concomitant]
     Indication: HYPERTENSION
     Route: 065
     Dates: start: 20011102, end: 20011201
  14. TOPROL-XL [Concomitant]
     Indication: HYPERTENSION
     Route: 065
     Dates: start: 20011102, end: 20011201
  15. ASPIRIN [Concomitant]
     Indication: PROPHYLAXIS
     Route: 065
     Dates: start: 20011102
  16. MOTRIN [Concomitant]
     Indication: PAIN
     Route: 065
     Dates: start: 19980901, end: 19981001
  17. MOTRIN [Concomitant]
     Route: 065
  18. HYDROCODONE HYDROCHLORIDE [Concomitant]
     Indication: PAIN
     Route: 065
     Dates: start: 19991001, end: 20020701
  19. CYCLOBENZAPRINE HYDROCHLORIDE [Concomitant]
     Indication: PAIN
     Route: 065
     Dates: start: 19980601
  20. DAYPRO [Concomitant]
     Indication: PAIN
     Route: 065
     Dates: start: 19930901
  21. PREMPRO [Concomitant]
     Indication: HORMONE REPLACEMENT THERAPY
     Route: 065
     Dates: start: 20020201, end: 20020501
  22. BIAXIN [Concomitant]
     Route: 065
  23. PROLEX DH [Concomitant]
     Route: 065
  24. LIPITOR [Concomitant]
     Indication: BLOOD CHOLESTEROL INCREASED
     Route: 065
     Dates: start: 20020101
  25. COREG [Concomitant]
     Indication: HYPERTENSION
     Route: 065
     Dates: start: 20020101
  26. MAVIK [Concomitant]
     Indication: HYPERTENSION
     Route: 065
     Dates: start: 20020101
  27. PLAVIX [Concomitant]
     Indication: ANTIPLATELET THERAPY
     Route: 065
     Dates: start: 20020101
  28. ADVAIR DISKUS 100/50 [Concomitant]
     Route: 065
     Dates: start: 20020101
  29. COMBIVENT [Concomitant]
     Route: 065
     Dates: start: 20020101

REACTIONS (33)
  - ACTIVITIES OF DAILY LIVING IMPAIRED [None]
  - ACUTE MYOCARDIAL INFARCTION [None]
  - ANAEMIA [None]
  - AORTIC VALVE SCLEROSIS [None]
  - BLOOD PRESSURE INCREASED [None]
  - CARDIAC FAILURE CONGESTIVE [None]
  - CARDIOMYOPATHY [None]
  - CHRONIC OBSTRUCTIVE PULMONARY DISEASE [None]
  - CORONARY ARTERY DISEASE [None]
  - DEPRESSION [None]
  - EARLY MORNING AWAKENING [None]
  - ELECTROCARDIOGRAM POOR R-WAVE PROGRESSION [None]
  - GOUT [None]
  - HEPATIC ENZYME INCREASED [None]
  - HYPERCHOLESTEROLAEMIA [None]
  - HYPERTENSIVE CARDIOMYOPATHY [None]
  - HYPERTENSIVE HEART DISEASE [None]
  - HYPOKALAEMIA [None]
  - INITIAL INSOMNIA [None]
  - IRRITABILITY [None]
  - LIBIDO DECREASED [None]
  - MIDDLE INSOMNIA [None]
  - MITRAL VALVE DISEASE [None]
  - MITRAL VALVE INCOMPETENCE [None]
  - MYOCARDIAL INFARCTION [None]
  - PALPITATIONS [None]
  - PULMONARY OEDEMA [None]
  - RESPIRATORY FAILURE [None]
  - SUICIDAL IDEATION [None]
  - SYNCOPE [None]
  - SYNCOPE VASOVAGAL [None]
  - TRICUSPID VALVE INCOMPETENCE [None]
  - VENTRICULAR HYPERTROPHY [None]
